FAERS Safety Report 6559160-9 (Version None)
Quarter: 2010Q1

REPORT INFORMATION
  Report Type: 
  Country: None (occurrence: None)
  Receive Date: 20100129
  Receipt Date: 20100120
  Transmission Date: 20100710
  Serious: Yes (Other)
  Sender: FDA-Public Use
  Company Number: JP-MERCK-1001USA03071

PATIENT
  Age: 84 Year
  Sex: Female

DRUGS (15)
  1. FOSAMAX [Suspect]
     Indication: OSTEOPOROSIS
     Route: 048
     Dates: start: 20011030, end: 20090727
  2. FOSAMAX [Suspect]
     Route: 048
     Dates: start: 20090728, end: 20091126
  3. NEUROTROPIN [Concomitant]
     Route: 048
     Dates: start: 20080410
  4. MOHRUS [Concomitant]
     Route: 061
  5. LASIX [Concomitant]
     Route: 048
  6. ALDACTONE [Concomitant]
     Route: 048
  7. NORVASC [Concomitant]
     Route: 048
  8. NU-LOTAN [Concomitant]
     Route: 048
  9. ASPIRIN [Concomitant]
     Route: 048
  10. MEVALOTIN [Concomitant]
     Route: 048
  11. PEPCID [Concomitant]
     Route: 048
  12. LENDORMIN [Concomitant]
     Route: 048
  13. PURSENNID [Concomitant]
     Route: 048
  14. RIZE [Concomitant]
     Route: 048
  15. AZUNOL (GUAIAZULENE) [Concomitant]
     Route: 061

REACTIONS (1)
  - OSTEOMYELITIS [None]
